FAERS Safety Report 19261278 (Version 19)
Quarter: 2024Q4

REPORT INFORMATION
  Report Type: Report from Study
  Country: US (occurrence: US)
  Receive Date: 20210515
  Receipt Date: 20241224
  Transmission Date: 20250115
  Serious: Yes (Hospitalization, Other)
  Sender: TAKEDA
  Company Number: US-SHIRE-US202017558

PATIENT
  Sex: Female

DRUGS (5)
  1. HUMAN IMMUNOGLOBULIN G [Suspect]
     Active Substance: HUMAN IMMUNOGLOBULIN G
     Indication: Primary immunodeficiency syndrome
     Dosage: 15 GRAM, 1/WEEK
  2. HUMAN IMMUNOGLOBULIN G [Suspect]
     Active Substance: HUMAN IMMUNOGLOBULIN G
     Dosage: UNK
  3. COVID-19 VACCINE NOS [Suspect]
     Active Substance: COVID-19 VACCINE
     Indication: Immunisation
     Dosage: UNK
  4. JARDIANCE [Concomitant]
     Active Substance: EMPAGLIFLOZIN
     Indication: Diabetes mellitus
     Dosage: UNK
  5. FASENRA [Concomitant]
     Active Substance: BENRALIZUMAB
     Indication: Product used for unknown indication
     Dosage: UNK

REACTIONS (44)
  - Sepsis [Unknown]
  - Diabetes mellitus [Unknown]
  - Cellulitis [Not Recovered/Not Resolved]
  - Pneumonia [Unknown]
  - Peripheral venous disease [Unknown]
  - Post-acute COVID-19 syndrome [Unknown]
  - Psoriasis [Recovering/Resolving]
  - Viral infection [Unknown]
  - Ingrowing nail [Unknown]
  - Blood glucose fluctuation [Recovering/Resolving]
  - Gait inability [Recovering/Resolving]
  - Ovarian neoplasm [Unknown]
  - Macular degeneration [Unknown]
  - Infection [Unknown]
  - Localised infection [Recovering/Resolving]
  - Blood pressure increased [Unknown]
  - Chills [Unknown]
  - Pyrexia [Unknown]
  - Dyspnoea [Unknown]
  - Pruritus [Unknown]
  - Cystitis [Unknown]
  - Walking aid user [Unknown]
  - Urinary tract infection [Not Recovered/Not Resolved]
  - Fungal infection [Not Recovered/Not Resolved]
  - Cyst [Unknown]
  - Breast mass [Unknown]
  - Tooth fracture [Unknown]
  - Upper respiratory tract infection [Unknown]
  - Anal infection [Unknown]
  - Dysphonia [Unknown]
  - Eyelid infection [Unknown]
  - Hiatus hernia [Unknown]
  - Gastrooesophageal reflux disease [Unknown]
  - Skin infection [Unknown]
  - Injection site haemorrhage [Unknown]
  - Genital rash [Unknown]
  - Blood glucose increased [Recovering/Resolving]
  - Skin injury [Unknown]
  - Orthosis user [Unknown]
  - Peripheral swelling [Recovering/Resolving]
  - Inappropriate schedule of product administration [Unknown]
  - Pain in extremity [Recovering/Resolving]
  - Cough [Recovering/Resolving]
  - Fatigue [Unknown]

NARRATIVE: CASE EVENT DATE: 20220101
